FAERS Safety Report 5005645-6 (Version None)
Quarter: 2006Q2

REPORT INFORMATION
  Report Type: 
  Country: None (occurrence: None)
  Receive Date: 20060515
  Receipt Date: 20060502
  Transmission Date: 20061013
  Serious: Yes (Other)
  Sender: FDA-Public Use
  Company Number: 14003

PATIENT
  Age: 58 Year
  Sex: Female

DRUGS (2)
  1. ANZATAX [Suspect]
     Indication: OVARIAN CANCER
     Dosage: 450 MG FREQ IV
     Route: 042
     Dates: start: 20060223, end: 20060223
  2. CARBOPLATIN [Concomitant]

REACTIONS (3)
  - BRONCHOSPASM [None]
  - ERYTHEMA [None]
  - RASH [None]
